FAERS Safety Report 4642264-5 (Version None)
Quarter: 2005Q2

REPORT INFORMATION
  Report Type: 
  Country: None (occurrence: None)
  Receive Date: 20050420
  Receipt Date: 20050407
  Transmission Date: 20051028
  Serious: Yes (Hospitalization)
  Sender: FDA-Public Use
  Company Number: 2005047613

PATIENT
  Age: 86 Year
  Sex: Male
  Weight: 39 kg

DRUGS (12)
  1. ZITHROMAX [Suspect]
     Indication: ILL-DEFINED DISORDER
     Dosage: 500 MG (500 MG , 1 IN 1 D), ORAL
     Route: 048
     Dates: start: 20050311, end: 20050313
  2. DISOPYRAMIDE PHOSPHATE [Suspect]
     Indication: ILL-DEFINED DISORDER
     Dosage: 300 MG(300 MG, 1 IN 1 D), ORAL
     Route: 048
     Dates: end: 20060316
  3. HUSCODE (CHLORPHENAMINE MALEATE, DIHYDROCODEINE PHOSPHATE, METHYLPHEDR [Concomitant]
  4. DIPYRIDAMOLE [Concomitant]
  5. DILAZEP DIHYDROCHLORIDE (DILAZEP DIHYDROCHLORIDE) [Concomitant]
  6. NAFTOPIDIL (NAFTOPIDIL) [Concomitant]
  7. DISTIGMINE BROMIDE (DISTIGMINE BROMIDE) [Concomitant]
  8. SENNOSIDE A+B (SENNOSIDE A+B) [Concomitant]
  9. SULPIRIDE (SULPIRIDE) [Concomitant]
  10. RILMAZAFONE (RILMAZAFONE) [Concomitant]
  11. FAMOTIDINE [Concomitant]
  12. FUROSEMIDE [Concomitant]

REACTIONS (5)
  - ANOREXIA [None]
  - HYPOGLYCAEMIA [None]
  - MENTAL IMPAIRMENT [None]
  - MOVEMENT DISORDER [None]
  - PNEUMONIA [None]
